FAERS Safety Report 17920936 (Version 2)
Quarter: 2020Q2

REPORT INFORMATION
  Report Type: Spontaneous
  Country: JP (occurrence: JP)
  Receive Date: 20200622
  Receipt Date: 20200629
  Transmission Date: 20200714
  Serious: Yes (Death)
  Sender: FDA-Public Use
  Company Number: JP-ROCHE-2627044

PATIENT
  Age: 58 Year
  Sex: Male

DRUGS (2)
  1. CELLCEPT [Suspect]
     Active Substance: MYCOPHENOLATE MOFETIL\MYCOPHENOLATE MOFETIL HYDROCHLORIDE
     Indication: CHOLANGITIS SCLEROSING
     Dosage: DOSAGE IS UNCERTAIN.
     Route: 048
  2. PREDNISOLONE. [Concomitant]
     Active Substance: PREDNISOLONE
     Indication: CHOLANGITIS SCLEROSING
     Dosage: DOSE INTERVAL UNCERTAINTY
     Route: 065

REACTIONS (2)
  - Off label use [Unknown]
  - Pneumonia aspiration [Fatal]
